FAERS Safety Report 7547491-5 (Version None)
Quarter: 2011Q2

REPORT INFORMATION
  Report Type: 
  Country: None (occurrence: None)
  Receive Date: 20110614
  Receipt Date: 20110607
  Transmission Date: 20111010
  Serious: Yes (Other)
  Sender: FDA-Public Use
  Company Number: US-US-EMD SERONO, INC.-430011J09USA

PATIENT
  Sex: Female
  Weight: 73 kg

DRUGS (2)
  1. NOVANTRONE [Suspect]
     Indication: MULTIPLE SCLEROSIS
     Route: 042
     Dates: start: 20080814, end: 20090101
  2. BACLOFEN [Concomitant]
     Indication: MUSCLE SPASMS
     Route: 065

REACTIONS (5)
  - CARDIAC VALVE DISEASE [None]
  - CARDIAC OUTPUT DECREASED [None]
  - CARDIAC FAILURE CONGESTIVE [None]
  - WEIGHT DECREASED [None]
  - WHITE BLOOD CELL COUNT DECREASED [None]
